FAERS Safety Report 11005815 (Version 1)
Quarter: 2015Q2

REPORT INFORMATION
  Report Type: Spontaneous
  Country: ES (occurrence: ES)
  Receive Date: 20150409
  Receipt Date: 20150409
  Transmission Date: 20150821
  Serious: Yes (Other)
  Sender: FDA-Public Use
  Company Number: PHHY2015ES042389

PATIENT
  Age: 35 Year
  Sex: Male

DRUGS (1)
  1. RIBAVIRIN. [Suspect]
     Active Substance: RIBAVIRIN
     Indication: CHRONIC HEPATITIS C
     Route: 065

REACTIONS (4)
  - Staphylococcal skin infection [Recovered/Resolved]
  - Skin lesion [Recovered/Resolved]
  - Pyoderma gangrenosum [Recovered/Resolved]
  - Lip ulceration [Recovered/Resolved]
